FAERS Safety Report 8801544 (Version 2)
Quarter: 2012Q4

REPORT INFORMATION
  Report Type: 
  Country: US (occurrence: US)
  Receive Date: 20120921
  Receipt Date: 20121123
  Transmission Date: 20130627
  Serious: Yes (Death, Other)
  Sender: FDA-Public Use
  Company Number: US-ROCHE-CID000000002103783

PATIENT
  Sex: Male

DRUGS (1)
  1. AVASTIN [Suspect]
     Indication: BRAIN NEOPLASM MALIGNANT
     Route: 042
     Dates: start: 20080404, end: 20080501

REACTIONS (3)
  - Sepsis [Fatal]
  - Necrotising fasciitis [Unknown]
  - Rash [Not Recovered/Not Resolved]
